FAERS Safety Report 9850411 (Version 1)
Quarter: 2013Q4

REPORT INFORMATION
  Report Type: Spontaneous
  Country: US (occurrence: None)
  Receive Date: 20131226
  Receipt Date: 20131226
  Transmission Date: 20140711
  Serious: Yes (Other)
  Sender: FDA-Public Use
  Company Number: PHEH2012US008348

PATIENT
  Age: 27 Year
  Sex: Female

DRUGS (5)
  1. AFINITOR (RAD) UNKNOWN [Suspect]
     Indication: TUBEROUS SCLEROSIS
     Route: 048
     Dates: start: 20110318
  2. TRILEPTAL (OXCARBAZEPINE) [Concomitant]
  3. RAPAMUNE (SIROLIMUS) [Concomitant]
  4. LEXAPRO (ESCITALOPRAM OXALATE) [Concomitant]
  5. LYSINE (LYSINE) [Concomitant]

REACTIONS (1)
  - Convulsion [None]
